FAERS Safety Report 15617006 (Version 3)
Quarter: 2018Q4

REPORT INFORMATION
  Report Type: Report from Study
  Country: JP (occurrence: JP)
  Receive Date: 20181114
  Receipt Date: 20181121
  Transmission Date: 20190205
  Serious: Yes (Death, Life-Threatening, Hospitalization, Other)
  Sender: FDA-Public Use
  Company Number: JP-TEVA-2018-JP-955283

PATIENT
  Age: 66 Year
  Sex: Male

DRUGS (20)
  1. SODIUM GUALENATE HYDRATE [Concomitant]
     Active Substance: SODIUM GUALENATE MONOHYDRATE
     Indication: STOMATITIS
     Dosage: UNK UNK, ADEQUATE AMOUNT AS NEEDED
     Route: 049
     Dates: start: 20180220, end: 20180908
  2. DEXAMETHASONE PROPIONATE [Concomitant]
     Indication: ECZEMA
     Dosage: UNK UNK, ADEQUATE AMOUNT, TWICE
     Route: 003
     Dates: start: 20180220
  3. NALDEMEDINE [Concomitant]
     Active Substance: NALDEMEDINE
     Indication: CONSTIPATION
     Dosage: .2 MILLIGRAM DAILY; 0.2 MG, ONCE DAILY
     Route: 048
     Dates: start: 20181009
  4. OXYCODONE [Concomitant]
     Active Substance: OXYCODONE
     Indication: CANCER PAIN
     Dosage: 20 MILLIGRAM DAILY;
     Route: 048
     Dates: start: 20180928
  5. OXYCODONE [Concomitant]
     Active Substance: OXYCODONE
     Indication: CANCER PAIN
     Dosage: 2.5 MG X1, AS NEEDED
     Route: 048
     Dates: start: 20180914
  6. BENDAMUSTINE HYDROCHLORIDE. [Suspect]
     Active Substance: BENDAMUSTINE HYDROCHLORIDE
     Indication: PLEURAL MESOTHELIOMA MALIGNANT
     Dosage: 25 MG/M2X1/DAY, CYCLIC (7 DAYS OF ADMINISTRATION AND 14 DAYS OF OBSERVATION)
     Route: 048
     Dates: start: 20180601, end: 20180607
  7. BENDAMUSTINE HYDROCHLORIDE. [Suspect]
     Active Substance: BENDAMUSTINE HYDROCHLORIDE
     Dosage: 25 MG/M2X1/DAY, CYCLIC (7 DAYS OF ADMINISTRATION AND 14 DAYS OF OBSERVATION)
     Route: 048
     Dates: start: 20180622, end: 20180628
  8. LOXOPROFEN SODIUM [Concomitant]
     Active Substance: LOXOPROFEN SODIUM
     Indication: CANCER PAIN
     Dosage: 180 MILLIGRAM DAILY;
     Route: 048
     Dates: start: 20180220, end: 20180908
  9. DEXAMETHASONE. [Concomitant]
     Active Substance: DEXAMETHASONE
     Indication: STOMATITIS
     Dosage: UNK UNK, ADEQUATE AMOUNT, TWICE
     Route: 049
     Dates: start: 20180220
  10. BENDAMUSTINE HYDROCHLORIDE. [Suspect]
     Active Substance: BENDAMUSTINE HYDROCHLORIDE
     Dosage: 25 MG/M2X1/DAY, CYCLIC (7 DAYS OF ADMINISTRATION AND 14 DAYS OF OBSERVATION)
     Route: 048
     Dates: start: 20180713, end: 20180719
  11. LANSOPRAZOLE. [Concomitant]
     Active Substance: LANSOPRAZOLE
     Indication: GASTRITIS PROPHYLAXIS
     Dosage: 30 MILLIGRAM DAILY;
     Route: 048
     Dates: start: 20180222
  12. HYDROCORTISONE BUTYRATE. [Concomitant]
     Active Substance: HYDROCORTISONE BUTYRATE
     Indication: ECZEMA
     Dosage: UNK UNK, ADEQUATE AMOUNT TWICE
     Route: 003
     Dates: start: 20180220
  13. EFINACONAZOLE [Concomitant]
     Active Substance: EFINACONAZOLE
     Indication: DERMATOPHYTOSIS OF NAIL
     Dosage: UNK UNK, ADEQUATE AMOUNT ONCE
     Route: 061
     Dates: start: 20180220
  14. BENDAMUSTINE HYDROCHLORIDE. [Suspect]
     Active Substance: BENDAMUSTINE HYDROCHLORIDE
     Dosage: 25 MG/M2X1/DAY, CYCLIC (7 DAYS OF ADMINISTRATION AND 14 DAYS OF OBSERVATION)
     Route: 048
     Dates: start: 20180806, end: 20180812
  15. REBAMIPIDE [Concomitant]
     Active Substance: REBAMIPIDE
     Indication: GASTRITIS PROPHYLAXIS
     Dosage: 300 MILLIGRAM DAILY;
     Route: 048
     Dates: start: 20180220, end: 20180908
  16. APIXABAN [Concomitant]
     Active Substance: APIXABAN
     Indication: VENOUS THROMBOSIS LIMB
     Dosage: 20 MILLIGRAM DAILY;
     Route: 048
     Dates: start: 20180220
  17. BENDAMUSTINE HYDROCHLORIDE. [Suspect]
     Active Substance: BENDAMUSTINE HYDROCHLORIDE
     Dosage: 25 MG/M2X1/DAY, CYCLIC (7 DAYS OF ADMINISTRATION AND 14 DAYS OF OBSERVATION)
     Route: 048
     Dates: start: 20180827, end: 20180902
  18. URSODEOXYCHOLIC ACID [Concomitant]
     Active Substance: URSODIOL
     Indication: NON-ALCOHOLIC STEATOHEPATITIS
     Dosage: 300 MILLIGRAM DAILY;
     Route: 048
     Dates: start: 20180220
  19. TRAMADOL. [Concomitant]
     Active Substance: TRAMADOL
     Indication: CANCER PAIN
     Route: 048
     Dates: start: 20180806, end: 20180908
  20. NAPROXEN. [Concomitant]
     Active Substance: NAPROXEN
     Indication: CANCER PAIN
     Dosage: 300 MILLIGRAM DAILY;
     Route: 048
     Dates: start: 20180922

REACTIONS (3)
  - Sepsis [Recovered/Resolved]
  - Pneumocystis jirovecii pneumonia [Not Recovered/Not Resolved]
  - Cytomegalovirus infection [Not Recovered/Not Resolved]

NARRATIVE: CASE EVENT DATE: 20180908
